FAERS Safety Report 9596686 (Version 3)
Quarter: 2014Q2

REPORT INFORMATION
  Report Type: Spontaneous
  Country: US (occurrence: US)
  Receive Date: 20131004
  Receipt Date: 20140408
  Transmission Date: 20141212
  Serious: Yes (Other)
  Sender: FDA-Public Use
  Company Number: US-GLAXOSMITHKLINE-A1043487A

PATIENT
  Age: 66 Year
  Sex: Female

DRUGS (12)
  1. ADVAIR HFA [Suspect]
     Indication: ASTHMA
     Dosage: 2PUFF TWICE PER DAY
     Route: 055
     Dates: start: 2007
  2. VERAMYST [Suspect]
     Indication: UPPER-AIRWAY COUGH SYNDROME
     Dosage: 2SPR TWICE PER DAY
     Route: 045
     Dates: start: 2010
  3. XOLAIR [Suspect]
     Indication: ASTHMA
     Route: 065
  4. ASTEPRO [Concomitant]
  5. NORPACE CR [Concomitant]
  6. DILTIAZEM ER [Concomitant]
  7. LASIX [Concomitant]
  8. DIOVAN [Concomitant]
  9. LOVAZA [Concomitant]
  10. ANTIFUNGAL [Concomitant]
  11. CLARITHROMYCIN [Concomitant]
  12. DULERA [Concomitant]
     Route: 065

REACTIONS (13)
  - Pneumonia [Not Recovered/Not Resolved]
  - Cellulitis [Not Recovered/Not Resolved]
  - Muscle spasms [Not Recovered/Not Resolved]
  - Heart rate increased [Not Recovered/Not Resolved]
  - Oedema peripheral [Not Recovered/Not Resolved]
  - Gravitational oedema [Not Recovered/Not Resolved]
  - Abdominal distension [Not Recovered/Not Resolved]
  - Pain in extremity [Not Recovered/Not Resolved]
  - Vaginal infection [Not Recovered/Not Resolved]
  - Respiratory tract irritation [Not Recovered/Not Resolved]
  - Oropharyngitis fungal [Not Recovered/Not Resolved]
  - Oedema due to cardiac disease [Not Recovered/Not Resolved]
  - Asthma [Not Recovered/Not Resolved]
